FAERS Safety Report 7283151-6 (Version None)
Quarter: 2011Q1

REPORT INFORMATION
  Report Type: 
  Country: None (occurrence: None)
  Receive Date: 20110204
  Receipt Date: 20110204
  Transmission Date: 20110831
  Serious: Yes (Death, Hospitalization)
  Sender: FDA-Public Use
  Company Number: None

PATIENT
  Sex: Female
  Weight: 126 kg

DRUGS (3)
  1. CYCLOPHOSPHAMIDE [Suspect]
     Dosage: 6600 MG
     Dates: end: 20070717
  2. FLUOROURACIL [Suspect]
     Dosage: 6600 MG
     Dates: end: 20070717
  3. ELLENCE [Suspect]
     Dosage: 1332 MG
     Dates: end: 20070717

REACTIONS (10)
  - PLATELET COUNT DECREASED [None]
  - BRONCHOPULMONARY ASPERGILLOSIS [None]
  - ORTHOPNOEA [None]
  - DYSPNOEA [None]
  - ACUTE LYMPHOCYTIC LEUKAEMIA [None]
  - HAEMOGLOBIN INCREASED [None]
  - HAEMATOCRIT DECREASED [None]
  - CARDIAC FAILURE CONGESTIVE [None]
  - CHRONIC OBSTRUCTIVE PULMONARY DISEASE [None]
  - PULMONARY HYPERTENSION [None]
